FAERS Safety Report 8736900 (Version 3)
Quarter: 2012Q4

REPORT INFORMATION
  Report Type: 
  Country: US (occurrence: US)
  Receive Date: 20120822
  Receipt Date: 20121113
  Transmission Date: 20130627
  Serious: Yes (Death, Other)
  Sender: FDA-Public Use
  Company Number: US-CELGENEUS-163-21880-12081661

PATIENT
  Age: 66 Year
  Sex: Male

DRUGS (5)
  1. REVLIMID [Suspect]
     Indication: POEMS SYNDROME
     Dosage: 10 Milligram
     Route: 048
     Dates: start: 20120626, end: 20120710
  2. REVLIMID [Suspect]
     Indication: MDS
  3. ANTIBIOTICS [Concomitant]
     Indication: DRUG USE FOR UNKNOWN INDICATION
     Route: 065
  4. MORPHINE [Concomitant]
     Indication: PAIN
     Dosage: 5-15mg
     Route: 065
     Dates: start: 20120804
  5. HYDROCORTISONE [Concomitant]
     Indication: ADRENAL INSUFFICIENCY
     Dosage: 50 Milligram
     Route: 041

REACTIONS (5)
  - POEMS syndrome [Fatal]
  - Myelodysplastic syndrome [Fatal]
  - Sepsis [Fatal]
  - Platelet count decreased [Unknown]
  - Haemoglobin decreased [Unknown]
